FAERS Safety Report 10201717 (Version 1)
Quarter: 2014Q2

REPORT INFORMATION
  Report Type: Spontaneous
  Country: US (occurrence: US)
  Receive Date: 20140528
  Receipt Date: 20140528
  Transmission Date: 20141212
  Serious: No
  Sender: FDA-Public Use
  Company Number: US-BRISTOL-MYERS SQUIBB COMPANY-18983783

PATIENT
  Sex: 0

DRUGS (17)
  1. METFORMIN HCL TABS 500MG [Suspect]
     Indication: TYPE 2 DIABETES MELLITUS
     Route: 048
  2. LYRICA [Suspect]
     Indication: NEUROPATHY PERIPHERAL
  3. GABAPENTIN [Suspect]
     Indication: NEUROPATHY PERIPHERAL
  4. LOPID [Suspect]
     Indication: BLOOD TRIGLYCERIDES INCREASED
     Dosage: BEFORE BREAKFAST AND DINNER
  5. DIGOXIN [Concomitant]
     Indication: ARRHYTHMIA
  6. DIGOXIN [Concomitant]
     Indication: SUPRAVENTRICULAR TACHYCARDIA
  7. LISINOPRIL [Concomitant]
     Indication: DIABETES INSIPIDUS
  8. METHOTREXATE [Concomitant]
     Indication: ARTHRITIS
     Dosage: ONLY SUNDAY
  9. METOCLOPRAMIDE [Concomitant]
     Indication: IMPAIRED GASTRIC EMPTYING
     Dosage: BEFORE MEAL.TABS
  10. MINOCYCLINE [Concomitant]
     Indication: PEMPHIGOID
  11. PROVIGIL [Concomitant]
     Indication: SLEEP APNOEA SYNDROME
     Dosage: 200MG AT 8 AM AND A 2ND TAB IF NEEDED AT 3PM
  12. VERAPAMIL [Concomitant]
     Indication: CARDIAC DISORDER
  13. HUMULIN N [Concomitant]
     Indication: TYPE 2 DIABETES MELLITUS
     Dosage: 43 UNITS AM,45 UNITS PM
  14. HUMULIN R [Concomitant]
     Indication: TYPE 2 DIABETES MELLITUS
     Route: 058
  15. ALBUTEROL [Concomitant]
     Indication: ASTHMA
     Dosage: 1DF=2 PUFFS
  16. ADVAIR [Concomitant]
     Dosage: 1DF=250/50 UNIT NOS
  17. VITAMIN K [Concomitant]
     Indication: HAEMORRHAGE
     Dosage: 1DF=10MG/ML.ON 1ST AND 15TH OF EACH MONTH
     Route: 058

REACTIONS (3)
  - Restless legs syndrome [Unknown]
  - Pain [Unknown]
  - Fluid retention [Unknown]
